FAERS Safety Report 13381567 (Version 2)
Quarter: 2017Q1

REPORT INFORMATION
  Report Type: Spontaneous
  Country: US (occurrence: US)
  Receive Date: 20170329
  Receipt Date: 20170330
  Transmission Date: 20170429
  Serious: Yes (Hospitalization, Other)
  Sender: FDA-Public Use
  Company Number: US-ALLERGAN-1711841US

PATIENT
  Age: 34 Year
  Sex: Male

DRUGS (5)
  1. NORTHERA [Suspect]
     Active Substance: DROXIDOPA
     Indication: AUTONOMIC NERVOUS SYSTEM IMBALANCE
     Dosage: 300 MG, TID
     Route: 048
     Dates: start: 201611
  2. NORTHERA [Suspect]
     Active Substance: DROXIDOPA
     Dosage: UNK UNK, QD
     Route: 048
     Dates: start: 20161022
  3. NORTHERA [Suspect]
     Active Substance: DROXIDOPA
     Dosage: 900 MG, QD
     Route: 048
     Dates: start: 20161026
  4. LEXAPRO [Suspect]
     Active Substance: ESCITALOPRAM OXALATE
     Indication: PRODUCT USED FOR UNKNOWN INDICATION
     Route: 065
  5. NORTHERA [Suspect]
     Active Substance: DROXIDOPA
     Dosage: 1800 MG, QD
     Route: 048

REACTIONS (10)
  - Early satiety [Unknown]
  - Muscular weakness [Unknown]
  - Orthostatic hypotension [Unknown]
  - Chest pain [Unknown]
  - Syncope [Unknown]
  - Vomiting [Unknown]
  - Dizziness postural [Unknown]
  - Dizziness [Unknown]
  - Pseudomonas infection [Unknown]
  - Dyspepsia [Unknown]

NARRATIVE: CASE EVENT DATE: 20161116
